FAERS Safety Report 25035619 (Version 1)
Quarter: 2025Q1

REPORT INFORMATION
  Report Type: Spontaneous
  Country: SE (occurrence: SE)
  Receive Date: 20250304
  Receipt Date: 20250304
  Transmission Date: 20250408
  Serious: Yes (Hospitalization, Other)
  Sender: SANDOZ
  Company Number: SE-SANDOZ-SDZ2024SE107569

PATIENT
  Age: 46 Year
  Sex: Female

DRUGS (2)
  1. PREDNISOLONE [Suspect]
     Active Substance: PREDNISOLONE
     Dosage: 0.5 MG/KG, QD, FOR 1 TO 5 WEEKS
     Route: 065
  2. PREDNISOLONE [Suspect]
     Active Substance: PREDNISOLONE
     Indication: Pemphigoid
     Dosage: 40 MG, QD, FOR 1 TO 5 WEEKS
     Route: 065

REACTIONS (13)
  - Neurosyphilis [Recovered/Resolved]
  - Pharyngitis [Recovered/Resolved]
  - Axillary pain [Recovered/Resolved]
  - Neck pain [Recovered/Resolved]
  - Dysphagia [Recovered/Resolved]
  - Ear pain [Recovered/Resolved]
  - Lymphadenopathy [Recovered/Resolved]
  - Night sweats [Recovered/Resolved]
  - Deafness bilateral [Recovered/Resolved]
  - Weight decreased [Recovered/Resolved]
  - Cough [Recovered/Resolved]
  - Swelling [Recovered/Resolved]
  - Arthralgia [Recovered/Resolved]
